FAERS Safety Report 6883093-1 (Version None)
Quarter: 2010Q3

REPORT INFORMATION
  Report Type: 
  Country: None (occurrence: None)
  Receive Date: 20100729
  Receipt Date: 20100723
  Transmission Date: 20110219
  Serious: Yes (Other)
  Sender: FDA-Public Use
  Company Number: US-BRISTOL-MYERS SQUIBB COMPANY-15206808

PATIENT
  Age: 61 Year
  Sex: Female

DRUGS (2)
  1. ONGLYZA [Suspect]
     Dosage: MEDICATION FOR 8 DAYS
     Dates: start: 20100601
  2. AVANDARYL [Concomitant]

REACTIONS (1)
  - THROAT TIGHTNESS [None]
